FAERS Safety Report 17230606 (Version 3)
Quarter: 2024Q1

REPORT INFORMATION
  Report Type: Spontaneous
  Country: US (occurrence: US)
  Receive Date: 20200103
  Receipt Date: 20240123
  Transmission Date: 20240410
  Serious: No
  Sender: FDA-Public Use
  Company Number: US-JNJFOC-20200103991

PATIENT
  Sex: Male

DRUGS (3)
  1. RISPERDAL [Suspect]
     Active Substance: RISPERIDONE
     Indication: Product used for unknown indication
     Route: 048
     Dates: start: 2003, end: 2004
  2. RISPERDAL [Suspect]
     Active Substance: RISPERIDONE
     Route: 048
  3. HALOPERIDOL [Suspect]
     Active Substance: HALOPERIDOL
     Indication: Agitation
     Route: 065

REACTIONS (6)
  - Gynaecomastia [Unknown]
  - Insomnia [Unknown]
  - Sedation [Unknown]
  - Emotional disorder [Unknown]
  - Drug ineffective [Unknown]
  - Off label use [Unknown]
